FAERS Safety Report 21167183 (Version 1)
Quarter: 2022Q3

REPORT INFORMATION
  Report Type: Spontaneous
  Country: US (occurrence: None)
  Receive Date: 20220803
  Receipt Date: 20220803
  Transmission Date: 20221026
  Serious: Yes (Death)
  Sender: FDA-Public Use
  Company Number: None

PATIENT
  Age: 3 Year
  Sex: Male
  Weight: 17.6 kg

DRUGS (6)
  1. CYTARABINE [Suspect]
     Active Substance: CYTARABINE
     Dates: end: 20220623
  2. DAUNORUBICIN [Suspect]
     Active Substance: DAUNORUBICIN
     Dates: end: 20220715
  3. DEXAMETHASONE [Suspect]
     Active Substance: DEXAMETHASONE
     Dates: end: 20220707
  4. METHOTREXATE [Suspect]
     Active Substance: METHOTREXATE
     Dates: end: 20220722
  5. ONCASPAR [Suspect]
     Active Substance: PEGASPARGASE
     Dates: end: 20220627
  6. VINCRISTINE SULFATE [Suspect]
     Active Substance: VINCRISTINE SULFATE
     Dates: end: 20220715

REACTIONS (1)
  - Death [None]

NARRATIVE: CASE EVENT DATE: 20220729
